FAERS Safety Report 8719259 (Version 3)
Quarter: 2013Q1

REPORT INFORMATION
  Report Type: Spontaneous
  Country: US (occurrence: US)
  Receive Date: 20120813
  Receipt Date: 20130110
  Transmission Date: 20140127
  Serious: No
  Sender: FDA-Public Use
  Company Number: US-009507513-1208USA004096

PATIENT
  Sex: Female

DRUGS (15)
  1. REMERON [Suspect]
     Indication: ANXIETY
     Dosage: 1 DF, HS
     Dates: start: 2012
  2. REMERON [Suspect]
     Indication: SLEEP DISORDER
  3. ATENOLOL [Concomitant]
     Dosage: UNK
  4. ACTONEL [Concomitant]
     Dosage: UNK
  5. LIPITOR [Concomitant]
     Dosage: UNK
  6. MUCINEX [Concomitant]
     Dosage: UNK
  7. DIAZEPAM [Concomitant]
     Dosage: UNK
  8. PENNSAID [Concomitant]
     Dosage: UNK
  9. FLUOXETINE [Concomitant]
     Dosage: UNK
  10. HYDROCHLOROTHIAZIDE [Concomitant]
     Dosage: UNK
  11. NORCO [Concomitant]
     Dosage: UNK
  12. HYOSCYAMINE [Concomitant]
     Dosage: UNK
  13. PROTONIX [Concomitant]
     Dosage: UNK
  14. LYRICA [Concomitant]
     Dosage: UNK
  15. COMPAZINE [Concomitant]
     Dosage: UNK

REACTIONS (2)
  - Pain in extremity [Recovered/Resolved]
  - Local swelling [Recovered/Resolved]
